FAERS Safety Report 4296069-8 (Version None)
Quarter: 2004Q1

REPORT INFORMATION
  Report Type: 
  Country: None (occurrence: None)
  Receive Date: 20040212
  Receipt Date: 20040204
  Transmission Date: 20041129
  Serious: Yes (Hospitalization)
  Sender: FDA-Public Use
  Company Number: 2004CG00236

PATIENT
  Age: 73 Year
  Sex: Female
  Weight: 35 kg

DRUGS (2)
  1. TENORMIN [Suspect]
     Dosage: 1 DF QD PO
     Route: 048
     Dates: end: 20030611
  2. TIAPRIDAL [Suspect]
     Dosage: 1 DF QD PO
     Route: 048
     Dates: end: 20030611

REACTIONS (5)
  - ASTHMA [None]
  - BRONCHOSPASM [None]
  - EOSINOPHILIA [None]
  - PULMONARY EMBOLISM [None]
  - RHINORRHOEA [None]
